FAERS Safety Report 14813159 (Version 4)
Quarter: 2018Q3

REPORT INFORMATION
  Report Type: Spontaneous
  Country: JP (occurrence: JP)
  Receive Date: 20180426
  Receipt Date: 20180716
  Transmission Date: 20181010
  Serious: Yes (Hospitalization)
  Sender: FDA-Public Use
  Company Number: JP-CONCORDIA PHARMACEUTICALS INC.-GSH201804-001399

PATIENT
  Sex: Female
  Weight: 48 kg

DRUGS (15)
  1. ALFACALCIDOL [Concomitant]
     Active Substance: ALFACALCIDOL
     Indication: OSTEOPOROSIS
     Dates: start: 20100420
  2. PREDONINE [Concomitant]
     Active Substance: PREDNISOLONE
     Dates: start: 20180223
  3. PREDONINE [Concomitant]
     Active Substance: PREDNISOLONE
  4. PREDONINE [Concomitant]
     Active Substance: PREDNISOLONE
     Dosage: THE DOSE OF PREDONINE WAS TAPERED DOWN EACH WEEK FROM 30 MG/DAY TO 25 MG/DAY, TO 20 MG/DAY, AND TO 1
     Dates: start: 20180228
  5. PREDONINE [Concomitant]
     Active Substance: PREDNISOLONE
     Dates: start: 20180217, end: 20180219
  6. PLAQUENIL [Suspect]
     Active Substance: HYDROXYCHLOROQUINE SULFATE
     Indication: SYSTEMIC LUPUS ERYTHEMATOSUS
     Route: 048
     Dates: start: 20180111, end: 20180204
  7. NEXIUM [Concomitant]
     Active Substance: ESOMEPRAZOLE MAGNESIUM
     Indication: GASTRIC ULCER
     Dates: start: 20121215
  8. PREDONINE [Concomitant]
     Active Substance: PREDNISOLONE
     Dates: start: 20180328
  9. ALLEGRA [Concomitant]
     Active Substance: FEXOFENADINE HYDROCHLORIDE
     Indication: RHINITIS ALLERGIC
     Dates: start: 20110330
  10. LIPITOR [Concomitant]
     Active Substance: ATORVASTATIN CALCIUM
     Indication: DYSLIPIDAEMIA
     Dates: start: 20121225
  11. ULCERLMIN [Concomitant]
     Active Substance: SUCRALFATE
     Indication: GASTRIC ULCER
     Dates: start: 20100420
  12. PREDONINE [Concomitant]
     Active Substance: PREDNISOLONE
     Indication: SYSTEMIC LUPUS ERYTHEMATOSUS
     Dates: start: 20100420
  13. PREDONINE [Concomitant]
     Active Substance: PREDNISOLONE
     Dates: start: 20180220, end: 20180222
  14. PREDONINE [Concomitant]
     Active Substance: PREDNISOLONE
     Dates: start: 20180208
  15. PREDONINE [Concomitant]
     Active Substance: PREDNISOLONE
     Dates: start: 20180213, end: 20180216

REACTIONS (6)
  - Burning sensation [Recovered/Resolved]
  - Erythema [Recovered/Resolved]
  - Pain [Recovered/Resolved]
  - Pruritus [Recovered/Resolved]
  - Urticaria [Recovered/Resolved]
  - Eczema [Recovered/Resolved]

NARRATIVE: CASE EVENT DATE: 20180202
